FAERS Safety Report 15246174 (Version 2)
Quarter: 2018Q3

REPORT INFORMATION
  Report Type: Spontaneous
  Country: US (occurrence: US)
  Receive Date: 20180806
  Receipt Date: 20180926
  Transmission Date: 20181010
  Serious: Yes (Hospitalization, Other)
  Sender: FDA-Public Use
  Company Number: US-GLAXOSMITHKLINE-US2018GSK138749

PATIENT
  Age: 74 Year
  Sex: Male

DRUGS (1)
  1. ADVAIR DISKUS [Suspect]
     Active Substance: FLUTICASONE PROPIONATE\SALMETEROL XINAFOATE
     Indication: CHRONIC OBSTRUCTIVE PULMONARY DISEASE
     Dosage: UNK
     Route: 055

REACTIONS (7)
  - Adverse drug reaction [Unknown]
  - Intensive care [Unknown]
  - Tracheostomy [Unknown]
  - Blister [Unknown]
  - Mechanical ventilation [Unknown]
  - Gastrointestinal tube insertion [Unknown]
  - Rash [Unknown]

NARRATIVE: CASE EVENT DATE: 20180531
